FAERS Safety Report 5001303-2 (Version None)
Quarter: 2006Q2

REPORT INFORMATION
  Report Type: 
  Country: None (occurrence: None)
  Receive Date: 20060512
  Receipt Date: 20060501
  Transmission Date: 20061013
  Serious: Yes (Hospitalization)
  Sender: FDA-Public Use
  Company Number: US-MERCK-0605USA00525

PATIENT
  Age: 90 Year
  Sex: Female

DRUGS (1)
  1. FOSAMAX [Suspect]
     Indication: HIP FRACTURE
     Route: 048
     Dates: start: 20050101, end: 20060501

REACTIONS (3)
  - GASTROINTESTINAL HAEMORRHAGE [None]
  - LYMPHOMA [None]
  - OESOPHAGEAL ULCER [None]
